FAERS Safety Report 12331322 (Version 1)
Quarter: 2016Q2

REPORT INFORMATION
  Report Type: Other
  Country: KR (occurrence: KR)
  Receive Date: 20160504
  Receipt Date: 20160504
  Transmission Date: 20160815
  Serious: Yes (Other)
  Sender: FDA-Public Use
  Company Number: KR-WARNER CHILCOTT, LLC-1051404

PATIENT
  Age: 68 Year
  Sex: Female

DRUGS (5)
  1. METHOTREXATE (METHOTREXATE SODIUM) [Concomitant]
     Active Substance: METHOTREXATE SODIUM
  2. NAPROXEN. [Concomitant]
     Active Substance: NAPROXEN
  3. PREDNISONE. [Concomitant]
     Active Substance: PREDNISONE
  4. ACTONEL [Suspect]
     Active Substance: RISEDRONATE SODIUM
     Indication: OSTEOPOROSIS PROPHYLAXIS
     Route: 048
  5. CHOLECALCIFEROL [Concomitant]
     Active Substance: CHOLECALCIFEROL

REACTIONS (2)
  - Fracture nonunion [Unknown]
  - Atypical femur fracture [Unknown]
